FAERS Safety Report 8183424-9 (Version None)
Quarter: 2012Q1

REPORT INFORMATION
  Report Type: 
  Country: None (occurrence: None)
  Receive Date: 20120305
  Receipt Date: 20120222
  Transmission Date: 20120608
  Serious: Yes (Other)
  Sender: FDA-Public Use
  Company Number: CA-COVIDIEN/TYCO HEALTHCARE/MALLINCKRODT-T201200685

PATIENT
  Age: 10 Year
  Sex: Male
  Weight: 44 kg

DRUGS (8)
  1. ZIPRASIDONE HYDROCHLORIDE [Suspect]
  2. PROPOFOL [Concomitant]
  3. DIVALPROEX SODIUM [Concomitant]
  4. MORPHINE [Suspect]
     Dosage: UNK
  5. FENTANYL CITRATE [Suspect]
     Dosage: UNK
  6. CODEINE SULFATE [Suspect]
  7. METHYLPHENIDATE [Concomitant]
  8. FLUVOXAMINE MALEATE [Concomitant]

REACTIONS (1)
  - SEROTONIN SYNDROME [None]
